FAERS Safety Report 11118345 (Version 2)
Quarter: 2015Q3

REPORT INFORMATION
  Report Type: Report from Study
  Country: IT (occurrence: IT)
  Receive Date: 20150518
  Receipt Date: 20150903
  Transmission Date: 20151125
  Serious: Yes (Hospitalization)
  Sender: FDA-Public Use
  Company Number: IT-TEVA-562303ACC

PATIENT
  Age: 57 Year
  Sex: Male

DRUGS (1)
  1. TEVAGRASTIM - 30 MUI 300 MCG/0,5ML SOLUZIONE INIETTABILE O PER INFUSIO [Suspect]
     Active Substance: FILGRASTIM
     Indication: AMYOTROPHIC LATERAL SCLEROSIS
     Dosage: 355 UG CYCLICAL
     Route: 042
     Dates: start: 20150504, end: 20150504

REACTIONS (4)
  - Chest pain [Recovered/Resolved]
  - Renal pain [Recovered/Resolved]
  - Hypoxia [Unknown]
  - Dyspnoea [Recovered/Resolved]

NARRATIVE: CASE EVENT DATE: 20150504
